FAERS Safety Report 19868936 (Version 1)
Quarter: 2021Q3

REPORT INFORMATION
  Report Type: Report from Study
  Country: US (occurrence: US)
  Receive Date: 20210922
  Receipt Date: 20210922
  Transmission Date: 20211014
  Serious: No
  Sender: FDA-Public Use
  Company Number: NVSC2021US215222

PATIENT
  Age: 23 Year

DRUGS (1)
  1. COSENTYX [Suspect]
     Active Substance: SECUKINUMAB
     Indication: PSORIATIC ARTHROPATHY
     Dosage: 300 MG (Q WEEK FOR FIVE WEEKS AND THEN Q MONTH)
     Route: 058
     Dates: start: 20210202

REACTIONS (2)
  - Drug ineffective [Unknown]
  - Psoriasis [Unknown]

NARRATIVE: CASE EVENT DATE: 20210921
